FAERS Safety Report 9869439 (Version 2)
Quarter: 2014Q1

REPORT INFORMATION
  Report Type: Spontaneous
  Country: US (occurrence: US)
  Receive Date: 20140205
  Receipt Date: 20140213
  Transmission Date: 20141002
  Serious: No
  Sender: FDA-Public Use
  Company Number: US-PFIZER INC-2014031825

PATIENT
  Age: 53 Year
  Sex: Female
  Weight: 102 kg

DRUGS (3)
  1. ENBREL [Suspect]
     Indication: PAIN
     Dosage: UNK, TWICE WEEKLY
  2. METHOTREXATE SODIUM [Suspect]
     Dosage: UNK
  3. HUMIRA [Suspect]
     Dosage: UNK

REACTIONS (1)
  - Drug ineffective for unapproved indication [Unknown]
